FAERS Safety Report 9714351 (Version 3)
Quarter: 2013Q4

REPORT INFORMATION
  Report Type: Spontaneous
  Country: US (occurrence: US)
  Receive Date: 20131126
  Receipt Date: 20131231
  Transmission Date: 20140711
  Serious: Yes (Hospitalization, Other)
  Sender: FDA-Public Use
  Company Number: US-PFIZER INC-2013336000

PATIENT
  Age: 77 Year
  Sex: Female
  Weight: 53 kg

DRUGS (1)
  1. METHOTREXATE SODIUM [Suspect]
     Dosage: UNK
     Dates: start: 201111, end: 2011

REACTIONS (12)
  - Thrombosis [Unknown]
  - Cerebrovascular accident [Unknown]
  - Aphagia [Unknown]
  - Pulmonary thrombosis [Unknown]
  - Pulmonary oedema [Unknown]
  - Vomiting [Unknown]
  - Oral pain [Unknown]
  - Oropharyngeal pain [Unknown]
  - Dyspnoea [Unknown]
  - Haemoglobin decreased [Unknown]
  - Renal disorder [Unknown]
  - Dysuria [Unknown]
